FAERS Safety Report 9259035 (Version 2)
Quarter: 2013Q2

REPORT INFORMATION
  Report Type: Not Available
  Country: GB (occurrence: GB)
  Receive Date: 20130426
  Receipt Date: 20130507
  Transmission Date: 20140414
  Serious: Yes (Hospitalization, Other)
  Sender: FDA-Public Use
  Company Number: GB-NAPPMUNDI-GBR-2013-0013797

PATIENT
  Age: 29 Year
  Sex: Female

DRUGS (6)
  1. MORPHINE SULFATE [Suspect]
     Indication: PRODUCT USED FOR UNKNOWN INDICATION
     Dosage: UNK
     Route: 065
  2. ABILIFY [Suspect]
     Indication: SCHIZOAFFECTIVE DISORDER
     Dosage: 10 MG, DAILY
     Route: 048
     Dates: start: 20130329, end: 20130331
  3. ABILIFY [Suspect]
     Dosage: 5 MG, DAILY
     Route: 048
     Dates: start: 201303
  4. ANTIPSYCHOTICS [Concomitant]
  5. PROPANOLOL                         /00030001/ [Concomitant]
  6. CLONAZEPAM [Concomitant]

REACTIONS (8)
  - Cardiac arrest [Recovered/Resolved]
  - Dystonia [Unknown]
  - Speech disorder [Unknown]
  - Suicidal ideation [Not Recovered/Not Resolved]
  - Feeling abnormal [Not Recovered/Not Resolved]
  - Anaphylactic reaction [Recovered/Resolved]
  - Fatigue [Not Recovered/Not Resolved]
  - Insomnia [Unknown]
